FAERS Safety Report 6887505-9 (Version None)
Quarter: 2010Q3

REPORT INFORMATION
  Report Type: 
  Country: None (occurrence: None)
  Receive Date: 20100727
  Receipt Date: 20100714
  Transmission Date: 20110219
  Serious: Yes (Other)
  Sender: FDA-Public Use
  Company Number: AXC-2010-000180

PATIENT

DRUGS (4)
  1. VIOKASE 16 [Suspect]
     Indication: PANCREATITIS
     Dosage: 2 TABLETS WITH MEALS, ORAL, 4 TABLETS WITH MEALS,  1 TABLET WITH MEALS, ORAL
     Route: 048
     Dates: start: 20100601, end: 20100601
  2. VIOKASE 16 [Suspect]
     Indication: PANCREATITIS
     Dosage: 2 TABLETS WITH MEALS, ORAL, 4 TABLETS WITH MEALS,  1 TABLET WITH MEALS, ORAL
     Route: 048
     Dates: start: 20100601, end: 20100601
  3. VIOKASE 16 [Suspect]
     Indication: PANCREATITIS
     Dosage: 2 TABLETS WITH MEALS, ORAL, 4 TABLETS WITH MEALS,  1 TABLET WITH MEALS, ORAL
     Route: 048
     Dates: start: 20100601, end: 20100601
  4. VIOKASE 16 [Suspect]
     Indication: PANCREATITIS
     Dosage: 2 TABLETS WITH MEALS, ORAL, 4 TABLETS WITH MEALS,  1 TABLET WITH MEALS, ORAL
     Route: 048
     Dates: start: 20100601, end: 20100630

REACTIONS (1)
  - HALLUCINATION, VISUAL [None]
